FAERS Safety Report 10064036 (Version 1)
Quarter: 2014Q2

REPORT INFORMATION
  Report Type: Report from Study
  Country: NL (occurrence: NL)
  Receive Date: 20140408
  Receipt Date: 20140408
  Transmission Date: 20141212
  Serious: Yes (Life-Threatening)
  Sender: FDA-Public Use
  Company Number: NL-ROCHE-1376244

PATIENT
  Age: 74 Year
  Sex: Female

DRUGS (9)
  1. CAPECITABINE [Suspect]
     Indication: COLON CANCER
     Dosage: LAST CYCLE (17) ON 25/MAR/2014.
     Route: 065
     Dates: start: 20140325
  2. BEVACIZUMAB [Suspect]
     Indication: COLON CANCER
     Dosage: LAST CYCLE (17) ON 25/MAR/2014.
     Route: 065
     Dates: start: 20140325
  3. OXALIPLATIN [Suspect]
     Indication: COLON CANCER
     Dosage: LAST CYCLE (8) ON 17/SEP/2013.
     Route: 065
     Dates: start: 20130917
  4. ONDANSETRON [Concomitant]
  5. METOCLOPRAMIDE [Concomitant]
  6. FLIXONASE [Concomitant]
  7. PICOPREP [Concomitant]
  8. PROPRANOLOL [Concomitant]
  9. BUMETANIDE [Concomitant]

REACTIONS (1)
  - Large intestine perforation [Unknown]
